FAERS Safety Report 10146160 (Version 1)
Quarter: 2014Q2

REPORT INFORMATION
  Report Type: Spontaneous
  Country: US (occurrence: US)
  Receive Date: 20140501
  Receipt Date: 20140501
  Transmission Date: 20141212
  Serious: No
  Sender: FDA-Public Use
  Company Number: US-TARO-2014P1000133

PATIENT
  Age: 85 Year
  Sex: Female
  Weight: 63.5 kg

DRUGS (5)
  1. AMIODARONE HCL TABLET 100 MG [Suspect]
     Indication: ATRIAL FIBRILLATION
     Route: 048
     Dates: start: 201302, end: 201304
  2. AMIODARONE HCL TABLET 100 MG [Suspect]
     Indication: ATRIAL FIBRILLATION
     Route: 048
     Dates: start: 201304, end: 201312
  3. LEVOTHYROXINE [Concomitant]
  4. AMLODIPINE BESYLATE [Concomitant]
     Dates: start: 201302
  5. LOSARTAN POTASSIUM [Concomitant]
     Dates: start: 201302

REACTIONS (2)
  - Alopecia [Not Recovered/Not Resolved]
  - Fatigue [Not Recovered/Not Resolved]
